FAERS Safety Report 13867454 (Version 1)
Quarter: 2017Q3

REPORT INFORMATION
  Report Type: Spontaneous
  Country: US (occurrence: US)
  Receive Date: 20170814
  Receipt Date: 20170814
  Transmission Date: 20171127
  Serious: No
  Sender: FDA-Public Use
  Company Number: US-GALEN SPECIALTY PHARMA US LLC-AE-2016-0480

PATIENT
  Sex: Female

DRUGS (2)
  1. PROGESTERONE. [Concomitant]
     Active Substance: PROGESTERONE
     Route: 030
  2. SYNERA [Suspect]
     Active Substance: LIDOCAINE\TETRACAINE
     Route: 061
     Dates: start: 2016

REACTIONS (1)
  - Off label use [None]
